FAERS Safety Report 8121359-8 (Version None)
Quarter: 2012Q1

REPORT INFORMATION
  Report Type: 
  Country: None (occurrence: None)
  Receive Date: 20120208
  Receipt Date: 20120131
  Transmission Date: 20120608
  Serious: Yes (Other)
  Sender: FDA-Public Use
  Company Number: JP-ASTELLAS-2012JP000936

PATIENT
  Age: 19 Year
  Sex: Female

DRUGS (3)
  1. PROGRAF [Suspect]
     Dosage: 3 MG, UNKNOWN/D
     Route: 048
     Dates: start: 20111101
  2. PERSANTIN [Suspect]
     Route: 065
  3. PREDNISOLONE [Concomitant]
     Dosage: 9 MG, UNKNOWN/D
     Route: 048

REACTIONS (1)
  - MENORRHAGIA [None]
